FAERS Safety Report 6854593-5 (Version None)
Quarter: 2010Q3

REPORT INFORMATION
  Report Type: 
  Country: None (occurrence: None)
  Receive Date: 20100717
  Receipt Date: 20080219
  Transmission Date: 20110219
  Serious: Yes (Other)
  Sender: FDA-Public Use
  Company Number: US-PFIZER INC-2008000106

PATIENT
  Sex: Male
  Weight: 74.8 kg

DRUGS (4)
  1. CHANTIX [Suspect]
     Indication: SMOKING CESSATION THERAPY
     Route: 048
     Dates: start: 20071001, end: 20071128
  2. ZYRTEC-D 12 HOUR [Concomitant]
  3. PROTONIX [Concomitant]
     Dosage: DAILY
  4. AVODART [Concomitant]
     Dosage: DAILY

REACTIONS (1)
  - HYPERKALAEMIA [None]
